FAERS Safety Report 7114100-9 (Version None)
Quarter: 2010Q4

REPORT INFORMATION
  Report Type: 
  Country: None (occurrence: None)
  Receive Date: 20101119
  Receipt Date: 20101110
  Transmission Date: 20110411
  Serious: Yes (Death, Hospitalization)
  Sender: FDA-Public Use
  Company Number: DE-JNJFOC-20090709396

PATIENT
  Age: 66 Year
  Sex: Female

DRUGS (3)
  1. REMICADE [Suspect]
     Indication: RHEUMATOID ARTHRITIS
     Route: 042
  2. ENBREL [Concomitant]
     Indication: RHEUMATOID ARTHRITIS
  3. METHOTREXATE [Concomitant]
     Indication: RHEUMATOID ARTHRITIS

REACTIONS (7)
  - ATRIAL FIBRILLATION [None]
  - DEHYDRATION [None]
  - HYPOTENSION [None]
  - OVARIAN CANCER METASTATIC [None]
  - RENAL FAILURE ACUTE [None]
  - TACHYARRHYTHMIA [None]
  - VOMITING [None]
